FAERS Safety Report 6133032-6 (Version None)
Quarter: 2009Q1

REPORT INFORMATION
  Report Type: 
  Country: None (occurrence: None)
  Receive Date: 20090326
  Receipt Date: 20090317
  Transmission Date: 20090719
  Serious: Yes (Hospitalization, Other)
  Sender: FDA-Public Use
  Company Number: US-PFIZER INC-2006086716

PATIENT
  Sex: Female
  Weight: 72 kg

DRUGS (3)
  1. PROVERA [Suspect]
     Indication: MENOPAUSE
     Dosage: 2.5 MG, UNK
     Route: 048
     Dates: start: 19930101, end: 20030101
  2. MEDROXYPROGESTERONE ACETATE [Suspect]
     Indication: HORMONE REPLACEMENT THERAPY
     Route: 048
  3. ESTRACE [Suspect]
     Indication: MENOPAUSE
     Dosage: 1 MG, UNK
     Dates: start: 19930101, end: 20030101

REACTIONS (1)
  - BREAST CANCER FEMALE [None]
